FAERS Safety Report 7298319-2 (Version None)
Quarter: 2011Q1

REPORT INFORMATION
  Report Type: 
  Country: None (occurrence: None)
  Receive Date: 20110217
  Receipt Date: 20100205
  Transmission Date: 20110831
  Serious: No
  Sender: FDA-Public Use
  Company Number: US-PFIZER INC-2009313253

PATIENT
  Sex: Female
  Weight: 71.7 kg

DRUGS (4)
  1. APPLE CIDER VINEGAR [Concomitant]
     Dosage: UNK
  2. FISH OIL [Concomitant]
     Dosage: UNK
  3. XALATAN [Suspect]
     Indication: GLAUCOMA
     Dosage: 2 GTT, UNK
     Route: 047
     Dates: start: 20091021, end: 20091221
  4. RED YEAST RICE [Concomitant]
     Dosage: 600 MG, UNK

REACTIONS (3)
  - GAIT DISTURBANCE [None]
  - HEADACHE [None]
  - SINUS HEADACHE [None]
